FAERS Safety Report 8580372-7 (Version None)
Quarter: 2012Q3

REPORT INFORMATION
  Report Type: 
  Country: None (occurrence: None)
  Receive Date: 20120808
  Receipt Date: 20120727
  Transmission Date: 20120928
  Serious: Yes (Other)
  Sender: FDA-Public Use
  Company Number: BE-ELI_LILLY_AND_COMPANY-BE201205010217

PATIENT
  Age: 70 Year
  Sex: Female

DRUGS (3)
  1. BYETTA [Suspect]
     Dosage: 10 UG, QD
  2. METFORMIN HCL [Concomitant]
  3. BYETTA [Suspect]
     Indication: TYPE 2 DIABETES MELLITUS
     Dosage: UNK, UNKNOWN
     Dates: start: 20080101

REACTIONS (3)
  - OVARIAN CANCER [None]
  - WEIGHT DECREASED [None]
  - ECZEMA [None]
